FAERS Safety Report 7957922-4 (Version None)
Quarter: 2011Q4

REPORT INFORMATION
  Report Type: 
  Country: None (occurrence: None)
  Receive Date: 20111205
  Receipt Date: 20111125
  Transmission Date: 20120403
  Serious: Yes (Hospitalization, Other)
  Sender: FDA-Public Use
  Company Number: US-ABBOTT-11P-163-0878099-00

PATIENT
  Sex: Female

DRUGS (1)
  1. HUMIRA [Suspect]
     Indication: CROHN'S DISEASE
     Dosage: 1 IN 2 WK STARTING ON DAY 29 AS DIRECTED
     Route: 058
     Dates: start: 20110501

REACTIONS (3)
  - ABDOMINAL ABSCESS [None]
  - DEVICE RELATED INFECTION [None]
  - HERNIA [None]
